APPROVED DRUG PRODUCT: BREZTRI AEROSPHERE
Active Ingredient: BUDESONIDE; FORMOTEROL FUMARATE; GLYCOPYRROLATE
Strength: 0.16MG/INH;0.0048MG/INH;0.009MG/INH
Dosage Form/Route: AEROSOL, METERED;INHALATION
Application: N212122 | Product #001
Applicant: ASTRAZENECA AB
Approved: Jul 23, 2020 | RLD: Yes | RS: Yes | Type: RX

PATENTS:
Patent 8815258 | Expires: Mar 17, 2031
Patent 8703806 | Expires: May 28, 2030
Patent 8808713 | Expires: May 28, 2030
Patent 8324266 | Expires: May 28, 2030
Patent 9415009 | Expires: May 28, 2030
Patent 10716753 | Expires: May 28, 2030
Patent 9463161 | Expires: May 28, 2030
Patent 11833292 | Expires: Oct 5, 2038
Patent 11331442 | Expires: Oct 5, 2038